FAERS Safety Report 18154659 (Version 2)
Quarter: 2020Q3

REPORT INFORMATION
  Report Type: Spontaneous
  Country: IT (occurrence: IT)
  Receive Date: 20200817
  Receipt Date: 20200928
  Transmission Date: 20201103
  Serious: Yes (Other)
  Sender: FDA-Public Use
  Company Number: IT-BEH-2020121041

PATIENT
  Sex: Female

DRUGS (4)
  1. NADROPARIN [Suspect]
     Active Substance: NADROPARIN
     Route: 064
  2. ASPIRIN (E.C.) [Suspect]
     Active Substance: ASPIRIN
     Route: 064
  3. HUMAN IMMUNOGLOBULIN (NC) (IMMUNOGLOBULIN HUMAN NORMAL) [Suspect]
     Active Substance: HUMAN IMMUNOGLOBULIN G
     Indication: PRODUCT USED FOR UNKNOWN INDICATION
     Route: 064
  4. WARFARIN [Suspect]
     Active Substance: WARFARIN
     Route: 064

REACTIONS (2)
  - Foetal growth restriction [Unknown]
  - Foetal exposure during pregnancy [Unknown]
